FAERS Safety Report 19732424 (Version 2)
Quarter: 2021Q3

REPORT INFORMATION
  Report Type: Spontaneous
  Country: US (occurrence: US)
  Receive Date: 20210822
  Receipt Date: 20210928
  Transmission Date: 20211014
  Serious: No
  Sender: FDA-Public Use
  Company Number: US-BEH-2021135071

PATIENT
  Age: 52 Year
  Sex: Female
  Weight: 86.17 kg

DRUGS (2)
  1. HIZENTRA [Suspect]
     Active Substance: HUMAN IMMUNOGLOBULIN G
     Indication: SELECTIVE IGG SUBCLASS DEFICIENCY
     Dosage: 15 GRAM, QW
     Route: 058
     Dates: start: 20210101, end: 20210601
  2. HIZENTRA [Suspect]
     Active Substance: HUMAN IMMUNOGLOBULIN G
     Indication: IMMUNODEFICIENCY COMMON VARIABLE
     Dosage: 15 GRAM, QW
     Route: 058
     Dates: start: 202107

REACTIONS (4)
  - Product dose omission issue [Not Recovered/Not Resolved]
  - No adverse event [Unknown]
  - Blood immunoglobulin G decreased [Not Recovered/Not Resolved]
  - Insurance issue [Unknown]
